FAERS Safety Report 24563718 (Version 3)
Quarter: 2025Q2

REPORT INFORMATION
  Report Type: Spontaneous
  Country: US (occurrence: US)
  Receive Date: 20241030
  Receipt Date: 20250523
  Transmission Date: 20250717
  Serious: Yes (Hospitalization)
  Sender: ROCHE
  Company Number: US-ROCHE-10000117485

PATIENT
  Age: 38 Year
  Sex: Female

DRUGS (2)
  1. XOLAIR PFS [Suspect]
     Active Substance: OMALIZUMAB
     Indication: Chronic spontaneous urticaria
     Route: 065
     Dates: start: 20241017
  2. XOLAIR PFS [Suspect]
     Active Substance: OMALIZUMAB
     Indication: Angioedema

REACTIONS (13)
  - Pyrexia [Unknown]
  - Chills [Unknown]
  - Tachycardia [Unknown]
  - Swelling [Unknown]
  - Urticaria [Unknown]
  - Pain [Unknown]
  - Arthralgia [Recovering/Resolving]
  - Joint stiffness [Unknown]
  - Nausea [Unknown]
  - Headache [Recovering/Resolving]
  - Dizziness [Recovering/Resolving]
  - Dyspnoea exertional [Recovering/Resolving]
  - Palpitations [Unknown]

NARRATIVE: CASE EVENT DATE: 20241017
